FAERS Safety Report 10094784 (Version 1)
Quarter: 2014Q2

REPORT INFORMATION
  Report Type: Spontaneous
  Country: BR (occurrence: BR)
  Receive Date: 20140422
  Receipt Date: 20140422
  Transmission Date: 20141212
  Serious: Yes (Other)
  Sender: FDA-Public Use
  Company Number: BR-IPSEN BIOPHARMACEUTICALS, INC.-2014-1894

PATIENT
  Age: 16 Year
  Sex: Male

DRUGS (1)
  1. DYSPORT [Suspect]
     Indication: MUSCLE SPASTICITY
     Dosage: NOT REPORTED
     Route: 065

REACTIONS (4)
  - Adverse drug reaction [Unknown]
  - Eyelid ptosis [Unknown]
  - Asthenia [Unknown]
  - Dysphagia [Unknown]
